FAERS Safety Report 4655061-1 (Version None)
Quarter: 2005Q2

REPORT INFORMATION
  Report Type: 
  Country: None (occurrence: None)
  Receive Date: 20050504
  Receipt Date: 20050418
  Transmission Date: 20051028
  Serious: Yes (Death, Hospitalization, Other)
  Sender: FDA-Public Use
  Company Number: 2004106822

PATIENT
  Age: 76 Year
  Sex: Female
  Weight: 83.9154 kg

DRUGS (4)
  1. BEXTRA [Suspect]
     Indication: ARTHRITIS
     Dosage: 10 MG (10 MG, 1 IN 1 D), ORAL
     Route: 048
     Dates: start: 20041001, end: 20041020
  2. GLYBURIDE [Concomitant]
  3. OTHER ANTIHYPERTENSIVES (OTHER ANTIHYPERTENSIVES) [Concomitant]
  4. PIOGLITAZONE HCL [Concomitant]

REACTIONS (6)
  - ABDOMINAL PAIN [None]
  - ARRHYTHMIA [None]
  - CHOLECYSTITIS INFECTIVE [None]
  - DIARRHOEA [None]
  - SEPSIS [None]
  - VOMITING [None]
